FAERS Safety Report 9847357 (Version 3)
Quarter: 2014Q1

REPORT INFORMATION
  Report Type: Report from Study
  Country: CA (occurrence: CA)
  Receive Date: 20140127
  Receipt Date: 20140206
  Transmission Date: 20141002
  Serious: Yes (Hospitalization)
  Sender: FDA-Public Use
  Company Number: CA-ABBVIE-14P-028-1187068-00

PATIENT
  Age: 29 Year
  Sex: Male

DRUGS (3)
  1. HUMIRA [Suspect]
     Indication: CROHN^S DISEASE
     Route: 058
     Dates: start: 20130813, end: 20140102
  2. HUMIRA [Suspect]
     Dosage: 80 MG INDUCTION DOSE
     Route: 058
     Dates: start: 20140130, end: 20140130
  3. HUMIRA [Suspect]
     Dosage: WEEKLY DOSING

REACTIONS (3)
  - Respiratory disorder [Recovering/Resolving]
  - Drug ineffective [Unknown]
  - Influenza [Recovered/Resolved]
